FAERS Safety Report 17527434 (Version 2)
Quarter: 2020Q1

REPORT INFORMATION
  Report Type: Report from Study
  Country: None (occurrence: DE)
  Receive Date: 20200310
  Receipt Date: 20200313
  Transmission Date: 20200409
  Serious: Yes (Other)
  Sender: FDA-Public Use
  Company Number: DE-ABBVIE-20K-062-3309492-00

PATIENT
  Age: 14 Year
  Sex: Female
  Weight: 53.7 kg

DRUGS (2)
  1. HUMIRA [Suspect]
     Active Substance: ADALIMUMAB
     Indication: JUVENILE IDIOPATHIC ARTHRITIS
     Route: 058
     Dates: start: 20180605
  2. LEFLUNOMID [Concomitant]
     Active Substance: LEFLUNOMIDE
     Indication: JUVENILE IDIOPATHIC ARTHRITIS
     Dates: start: 20150721, end: 20190301

REACTIONS (5)
  - Maternal exposure during pregnancy [Unknown]
  - Abortion induced [Unknown]
  - Unwanted pregnancy [Unknown]
  - Pregnancy on contraceptive [Unknown]
  - Psoriasis [Unknown]

NARRATIVE: CASE EVENT DATE: 201812
